FAERS Safety Report 7271799-4 (Version None)
Quarter: 2011Q1

REPORT INFORMATION
  Report Type: 
  Country: None (occurrence: None)
  Receive Date: 20110203
  Receipt Date: 20110125
  Transmission Date: 20110831
  Serious: No
  Sender: FDA-Public Use
  Company Number: US-PFIZER INC-US-WYE-H15898210

PATIENT
  Sex: Female

DRUGS (9)
  1. SERTRALINE HYDROCHLORIDE [Concomitant]
  2. WELLBUTRIN [Concomitant]
  3. EFFEXOR [Suspect]
     Dosage: 37.5 MG, 3X/DAY
     Route: 065
     Dates: start: 20100101, end: 20100101
  4. CYMBALTA [Concomitant]
  5. EFFEXOR [Suspect]
     Dosage: INCREASED TO 150 MG DAILY ON UNK DATE
     Route: 065
     Dates: start: 20100101, end: 20100101
  6. LYRICA [Suspect]
     Indication: FIBROMYALGIA
     Dosage: 200 MG MIGHTLY AND 100 MG EACH MORNING
     Route: 065
     Dates: end: 20100603
  7. LYRICA [Suspect]
     Dosage: 200 MG, 1X/DAY
     Route: 065
     Dates: start: 20090501
  8. EFFEXOR [Suspect]
     Dosage: 37.5 MG, 3X/DAY
     Route: 065
     Dates: start: 20100101, end: 20100101
  9. PAXIL [Concomitant]

REACTIONS (2)
  - TINNITUS [None]
  - WEIGHT INCREASED [None]
